FAERS Safety Report 8805446 (Version 1)
Quarter: 2012Q4

REPORT INFORMATION
  Report Type: Spontaneous
  Country: US (occurrence: None)
  Receive Date: 20120918
  Receipt Date: 20120918
  Transmission Date: 20130627
  Serious: No
  Sender: FDA-Public Use
  Company Number: None

PATIENT
  Sex: Female
  Weight: 93.9 kg

DRUGS (3)
  1. CYMBALTA 30 MG LILLY [Suspect]
     Indication: BACK PAIN
     Dosage: 1 per day
     Route: 048
  2. CYMBALTA 30 MG LILLY [Suspect]
     Indication: LEG PAIN
     Dosage: 1 per day
     Route: 048
  3. CYMBALTA 30 MG LILLY [Suspect]
     Indication: PAINFUL FEET
     Dosage: 1 per day
     Route: 048

REACTIONS (12)
  - Fatigue [None]
  - Insomnia [None]
  - Dizziness [None]
  - Syncope [None]
  - Asthenia [None]
  - Gait disturbance [None]
  - Constipation [None]
  - Hyperhidrosis [None]
  - Pruritus [None]
  - Loss of consciousness [None]
  - Fall [None]
  - Palpitations [None]
